FAERS Safety Report 5518300-0 (Version None)
Quarter: 2007Q4

REPORT INFORMATION
  Report Type: 
  Country: None (occurrence: None)
  Receive Date: 20071113
  Receipt Date: 20071105
  Transmission Date: 20080405
  Serious: Yes (Hospitalization)
  Sender: FDA-Public Use
  Company Number: 2007RL000501

PATIENT
  Age: 70 Year
  Sex: Female

DRUGS (3)
  1. PROPAFENONE HCL [Suspect]
     Indication: DRUG USE FOR UNKNOWN INDICATION
     Dosage: 600 MG QD PO
     Route: 048
  2. ACETYLSALICYLIC ACID SRT [Concomitant]
  3. SIMVASTATIN [Concomitant]

REACTIONS (1)
  - CARDIOGENIC SHOCK [None]
